FAERS Safety Report 7564922-5 (Version None)
Quarter: 2011Q2

REPORT INFORMATION
  Report Type: 
  Country: None (occurrence: None)
  Receive Date: 20110622
  Receipt Date: 20110218
  Transmission Date: 20111010
  Serious: Yes (Death)
  Sender: FDA-Public Use
  Company Number: US-MYLANLABS-2011S1003563

PATIENT
  Age: 36 Year
  Sex: Male

DRUGS (10)
  1. CLARITIN /00917501/ [Concomitant]
  2. HUMALOG [Concomitant]
     Indication: DIABETES MELLITUS
     Dosage: HUMALOG 75/25
  3. NIZATIDINE [Concomitant]
  4. CLOZAPINE [Suspect]
     Route: 048
  5. CLOZAPINE [Suspect]
     Route: 048
  6. METFORMIN HCL [Concomitant]
     Indication: DIABETES MELLITUS
  7. DOCUSATE [Concomitant]
     Indication: CONSTIPATION
  8. PRAVASTATIN [Concomitant]
  9. LISINOPRIL [Concomitant]
     Indication: BLOOD PRESSURE INCREASED
  10. OXYBUTYNIN [Concomitant]

REACTIONS (1)
  - DEATH [None]
